FAERS Safety Report 7648146-9 (Version None)
Quarter: 2011Q3

REPORT INFORMATION
  Report Type: 
  Country: None (occurrence: None)
  Receive Date: 20110801
  Receipt Date: 20110726
  Transmission Date: 20111222
  Serious: Yes (Death)
  Sender: FDA-Public Use
  Company Number: US-PFIZER INC-2011041637

PATIENT
  Sex: Male

DRUGS (4)
  1. PERCOCET [Concomitant]
     Indication: PAIN
     Dosage: 10/325MG
  2. PREDNISONE [Concomitant]
     Indication: SARCOIDOSIS
     Dosage: 20 MG, UNK
  3. VFEND [Suspect]
     Indication: ASPERGILLOMA
     Dosage: 200 MG EVERY 12 HOURS
     Route: 048
     Dates: start: 20101122
  4. NORVASC [Concomitant]
     Indication: HYPERTENSION
     Dosage: 10 MG, UNK

REACTIONS (1)
  - DEATH [None]
